FAERS Safety Report 7415722-8 (Version None)
Quarter: 2011Q2

REPORT INFORMATION
  Report Type: 
  Country: None (occurrence: None)
  Receive Date: 20110414
  Receipt Date: 20100715
  Transmission Date: 20111010
  Serious: Yes (Hospitalization, Other)
  Sender: FDA-Public Use
  Company Number: US-BRISTOL-MYERS SQUIBB COMPANY-15194723

PATIENT
  Age: 61 Year
  Sex: Female

DRUGS (6)
  1. PREDNISONE [Concomitant]
     Route: 048
     Dates: start: 20100305
  2. ZANTAC [Concomitant]
     Indication: PROPHYLAXIS
     Dosage: 1DF=150 UNITS NOT SPECIFIED
     Route: 048
     Dates: start: 20100305
  3. ASPIRIN [Concomitant]
     Indication: PROPHYLAXIS
     Route: 048
     Dates: start: 20100305
  4. HYDREA [Suspect]
     Indication: PLATELET COUNT INCREASED
     Route: 048
     Dates: start: 20100401, end: 20100506
  5. REVLIMID [Suspect]
     Indication: MYELODYSPLASTIC SYNDROME
     Dosage: 5MG 1 IN 1DAY FROM 05MAR-UNK.10MG FROM JUN10-UNK.25MG (21DAYS) FROM JUN10-ONGOING
     Route: 048
     Dates: start: 20100305
  6. REVLIMID [Suspect]
     Indication: SPLENOMEGALY
     Dosage: 5MG 1 IN 1DAY FROM 05MAR-UNK.10MG FROM JUN10-UNK.25MG (21DAYS) FROM JUN10-ONGOING
     Route: 048
     Dates: start: 20100305

REACTIONS (1)
  - ANAEMIA [None]
